FAERS Safety Report 10729544 (Version 1)
Quarter: 2015Q1

REPORT INFORMATION
  Report Type: Spontaneous
  Country: US (occurrence: None)
  Receive Date: 20150121
  Receipt Date: 20150121
  Transmission Date: 20150721
  Serious: Yes (Other)
  Sender: FDA-Public Use
  Company Number: None

PATIENT
  Age: 86 Year
  Sex: Male
  Weight: 63.5 kg

DRUGS (16)
  1. MUCINEX [Concomitant]
     Active Substance: GUAIFENESIN
  2. ALBUTEROL. [Concomitant]
     Active Substance: ALBUTEROL
  3. PRAZOSIN HCL [Concomitant]
     Active Substance: PRAZOSIN HYDROCHLORIDE
  4. PREDNISONE. [Concomitant]
     Active Substance: PREDNISONE
  5. BENICAR HCT [Concomitant]
     Active Substance: HYDROCHLOROTHIAZIDE\OLMESARTAN MEDOXOMIL
  6. FINASTERID [Concomitant]
  7. THEO [Concomitant]
  8. PROAIR HFA [Concomitant]
     Active Substance: ALBUTEROL SULFATE
  9. STOOL SOFTENER [Concomitant]
     Active Substance: DOCUSATE CALCIUM
  10. ANORO ELLIPTA [Suspect]
     Active Substance: UMECLIDINIUM BROMIDE\VILANTEROL TRIFENATATE
     Indication: CHRONIC OBSTRUCTIVE PULMONARY DISEASE
     Dosage: ONE PUFF/DAY ONCE/DAY MOUTH
     Route: 048
     Dates: start: 20141222, end: 20141222
  11. SPIRIVA [Concomitant]
     Active Substance: TIOTROPIUM BROMIDE MONOHYDRATE
  12. O2 [Concomitant]
  13. CALCIUM [Concomitant]
     Active Substance: CALCIUM
  14. LIPITOR [Concomitant]
     Active Substance: ATORVASTATIN CALCIUM
  15. ASPIRIN. [Concomitant]
     Active Substance: ASPIRIN
  16. JUXTA-LITE [Concomitant]

REACTIONS (7)
  - Gait disturbance [None]
  - Insomnia [None]
  - Limb discomfort [None]
  - Inadequate analgesia [None]
  - Musculoskeletal discomfort [None]
  - Arthralgia [None]
  - Pain in extremity [None]

NARRATIVE: CASE EVENT DATE: 20141222
